FAERS Safety Report 17929498 (Version 1)
Quarter: 2020Q2

REPORT INFORMATION
  Report Type: Spontaneous
  Country: US (occurrence: US)
  Receive Date: 20200623
  Receipt Date: 20200623
  Transmission Date: 20200714
  Serious: No
  Sender: FDA-Public Use
  Company Number: US-ALLERGAN-1939245US

PATIENT
  Age: 34 Year
  Sex: Female

DRUGS (4)
  1. KYBELLA [Suspect]
     Active Substance: DEOXYCHOLIC ACID
     Dosage: UNK UNK, SINGLE (3 VIALS)
     Route: 058
     Dates: start: 20171103, end: 20171103
  2. KYBELLA [Suspect]
     Active Substance: DEOXYCHOLIC ACID
     Indication: SKIN WRINKLING
     Dosage: UNK UNK, SINGLE (3 VIALS)
     Route: 058
     Dates: start: 20180820, end: 20180820
  3. KYBELLA [Suspect]
     Active Substance: DEOXYCHOLIC ACID
     Dosage: UNK UNK, SINGLE (3 VIALS)
     Route: 058
     Dates: start: 20180105, end: 20180105
  4. KYBELLA [Suspect]
     Active Substance: DEOXYCHOLIC ACID
     Dosage: UNK UNK, SINGLE (3 VIALS)
     Route: 058
     Dates: start: 20180309, end: 20180309

REACTIONS (1)
  - Drug ineffective [Unknown]
